FAERS Safety Report 9831520 (Version 1)
Quarter: 2014Q1

REPORT INFORMATION
  Report Type: Spontaneous
  Country: GB (occurrence: GB)
  Receive Date: 20140121
  Receipt Date: 20140121
  Transmission Date: 20141002
  Serious: Yes (Death, Other)
  Sender: FDA-Public Use
  Company Number: GB-ACCORD-021326

PATIENT
  Age: 40 Year
  Sex: Female
  Weight: 76 kg

DRUGS (9)
  1. MYCOPHENOLIC ACID [Suspect]
     Indication: SYSTEMIC LUPUS ERYTHEMATOSUS
     Route: 048
     Dates: start: 20091020, end: 20131022
  2. HYDROXOCOBALAMIN/HYDROXOCOBALAMIN ACETATE/HYDROXOCOBALAMIN HYDROCHLORIDE [Concomitant]
  3. PHENOXYMETHYLPENICILLIN [Concomitant]
  4. IRON [Concomitant]
  5. PREDNISOLONE [Concomitant]
     Route: 042
  6. FOLIC ACID [Concomitant]
  7. ACETYLSALICYLIC ACID [Concomitant]
  8. HYDROXYCHLOROQUINE [Concomitant]
  9. CANDESARTAN [Concomitant]

REACTIONS (6)
  - Locked-in syndrome [Not Recovered/Not Resolved]
  - JC virus infection [Not Recovered/Not Resolved]
  - Cerebellar syndrome [Not Recovered/Not Resolved]
  - Off label use [Unknown]
  - Central nervous system lesion [Not Recovered/Not Resolved]
  - Progressive multifocal leukoencephalopathy [Fatal]
